FAERS Safety Report 23912812 (Version 1)
Quarter: 2024Q2

REPORT INFORMATION
  Report Type: Spontaneous
  Country: CN (occurrence: CN)
  Receive Date: 20240529
  Receipt Date: 20240529
  Transmission Date: 20240716
  Serious: Yes (Death, Other)
  Sender: FDA-Public Use
  Company Number: CN-JNJFOC-20240555833

PATIENT

DRUGS (1)
  1. IMBRUVICA [Suspect]
     Active Substance: IBRUTINIB
     Indication: Chronic lymphocytic leukaemia
     Route: 048

REACTIONS (11)
  - COVID-19 [Fatal]
  - Liver disorder [Unknown]
  - Haemorrhage [Unknown]
  - Neoplasm [Fatal]
  - Myocardial infarction [Unknown]
  - Fatigue [Unknown]
  - Myalgia [Unknown]
  - Infection [Fatal]
  - Drug intolerance [Unknown]
  - Arthralgia [Unknown]
  - Atrial fibrillation [Unknown]
